FAERS Safety Report 21800344 (Version 1)
Quarter: 2022Q4

REPORT INFORMATION
  Report Type: Report from Study
  Country: US (occurrence: US)
  Receive Date: 20221230
  Receipt Date: 20221230
  Transmission Date: 20230112
  Serious: Yes (Other)
  Sender: FDA-Public Use
  Company Number: US-TAKEDA-2022TUS087200

PATIENT
  Age: 61 Year
  Sex: Female

DRUGS (2)
  1. HUMAN IMMUNOGLOBULIN G [Suspect]
     Active Substance: HUMAN IMMUNOGLOBULIN G
     Indication: Hypergammaglobulinaemia
     Dosage: 16 GRAM, Q2WEEKS
     Route: 058
     Dates: start: 20221106
  2. HUMAN IMMUNOGLOBULIN G [Suspect]
     Active Substance: HUMAN IMMUNOGLOBULIN G
     Dosage: 16 GRAM, Q2WEEKS
     Route: 058
     Dates: start: 20221106

REACTIONS (15)
  - Meniere^s disease [Unknown]
  - Rash macular [Recovered/Resolved]
  - Infusion site inflammation [Recovered/Resolved]
  - Abdominal pain upper [Unknown]
  - Fibromyalgia [Unknown]
  - Increased appetite [Unknown]
  - Hypoaesthesia [Unknown]
  - Nausea [Unknown]
  - Headache [Unknown]
  - Fatigue [Unknown]
  - Influenza like illness [Unknown]
  - Infusion site haemorrhage [Unknown]
  - Infusion site pruritus [Unknown]
  - Infusion site erythema [Unknown]
  - Paraesthesia [Unknown]

NARRATIVE: CASE EVENT DATE: 20221106
